FAERS Safety Report 18651310 (Version 1)
Quarter: 2020Q4

REPORT INFORMATION
  Report Type: Report from Study
  Country: CA (occurrence: CA)
  Receive Date: 20201222
  Receipt Date: 20201222
  Transmission Date: 20210114
  Serious: Yes (Other)
  Sender: FDA-Public Use
  Company Number: CA-NALPROPION PHARMACEUTICALS INC.-2020-011977

PATIENT

DRUGS (8)
  1. BOSENTAN. [Concomitant]
     Active Substance: BOSENTAN
     Indication: PRINZMETAL ANGINA
     Dosage: 1 IN 1 D
     Route: 048
  2. DEXILANT [Concomitant]
     Active Substance: DEXLANSOPRAZOLE
     Indication: GASTROOESOPHAGEAL REFLUX DISEASE
     Dosage: 1 IN 1 D
     Route: 048
  3. ASPIRIN                            /00002701/ [Concomitant]
     Active Substance: ASPIRIN
     Indication: THROMBOSIS
     Dosage: 1 IN 1 D
     Route: 048
  4. CONTRAVE [Suspect]
     Active Substance: BUPROPION HYDROCHLORIDE\NALTREXONE HYDROCHLORIDE
     Indication: WEIGHT CONTROL
     Dosage: 90/8 MG, ONE TABLET IN THE MORNING
     Route: 048
     Dates: start: 20201201, end: 20201205
  5. CONTRAVE [Suspect]
     Active Substance: BUPROPION HYDROCHLORIDE\NALTREXONE HYDROCHLORIDE
     Dosage: 90/8 MG, ONE TABLET IN THE MORNING AND ONE IN EVENING
     Route: 048
     Dates: start: 20201206
  6. CLOPIDOGREL [Concomitant]
     Active Substance: CLOPIDOGREL BISULFATE
     Indication: THROMBOSIS
     Dosage: 1 IN 1 D
     Route: 048
  7. SPIRONOLACTONE. [Concomitant]
     Active Substance: SPIRONOLACTONE
     Indication: PRINZMETAL ANGINA
     Dosage: 1 IN 1 D
     Route: 048
  8. DILTIAZEM. [Concomitant]
     Active Substance: DILTIAZEM
     Indication: PRINZMETAL ANGINA
     Dosage: 1 IN 1 D
     Route: 048

REACTIONS (8)
  - Abdominal pain [Unknown]
  - Drug titration error [Unknown]
  - Nocturia [Unknown]
  - Muscle spasms [Not Recovered/Not Resolved]
  - Symptom recurrence [Unknown]
  - Insomnia [Not Recovered/Not Resolved]
  - Headache [Unknown]
  - Diverticulitis [Unknown]

NARRATIVE: CASE EVENT DATE: 202012
